FAERS Safety Report 9834538 (Version 1)
Quarter: 2014Q1

REPORT INFORMATION
  Report Type: Spontaneous
  Country: US (occurrence: US)
  Receive Date: 20140122
  Receipt Date: 20140122
  Transmission Date: 20141002
  Serious: No
  Sender: FDA-Public Use
  Company Number: US-TEVA-433638USA

PATIENT
  Age: 50 Year
  Sex: Male
  Weight: 106.69 kg

DRUGS (2)
  1. SALBUTAMOL W/IPRATROPIUM [Suspect]
     Indication: CHRONIC OBSTRUCTIVE PULMONARY DISEASE
     Dosage: 6 DOSAGE FORMS DAILY; 0.5/3 MG
  2. CHANTIX [Suspect]
     Indication: TOBACCO USER
     Dosage: 1 MILLIGRAM DAILY;
     Dates: end: 2012

REACTIONS (2)
  - Chronic obstructive pulmonary disease [Unknown]
  - Drug ineffective [Unknown]
